FAERS Safety Report 9315615 (Version 1)
Quarter: 2013Q2

REPORT INFORMATION
  Report Type: Report from Study
  Country: BR (occurrence: BR)
  Receive Date: 20130529
  Receipt Date: 20130529
  Transmission Date: 20140414
  Serious: Yes (Other)
  Sender: FDA-Public Use
  Company Number: BR-ABBOTT-13P-020-1094397-00

PATIENT
  Age: 45 Year
  Sex: Female
  Weight: 115 kg

DRUGS (5)
  1. HUMIRA [Suspect]
     Indication: RHEUMATOID ARTHRITIS
     Route: 058
     Dates: start: 201301
  2. METICORTEN [Suspect]
     Indication: PAIN
     Route: 048
     Dates: start: 2003
  3. METHOTREXATE [Concomitant]
     Indication: RHEUMATOID ARTHRITIS
     Route: 048
     Dates: start: 2003
  4. PARACETAMOL [Concomitant]
     Indication: PAIN
     Dosage: IF FEVER OR PAIN
     Route: 048
     Dates: start: 2003
  5. PARACETAMOL [Concomitant]
     Indication: PYREXIA

REACTIONS (13)
  - Blindness [Unknown]
  - Eye infection toxoplasmal [Not Recovered/Not Resolved]
  - Swelling [Not Recovered/Not Resolved]
  - Nephrolithiasis [Not Recovered/Not Resolved]
  - Hepatic steatosis [Not Recovered/Not Resolved]
  - Urinary tract infection [Recovered/Resolved]
  - Diabetes mellitus [Unknown]
  - Pain in extremity [Recovering/Resolving]
  - Arthralgia [Recovering/Resolving]
  - Pain in extremity [Recovering/Resolving]
  - Spinal pain [Recovering/Resolving]
  - Depression [Recovering/Resolving]
  - Immunodeficiency [Unknown]
